FAERS Safety Report 5380701-1 (Version None)
Quarter: 2007Q3

REPORT INFORMATION
  Report Type: 
  Country: None (occurrence: None)
  Receive Date: 20070706
  Receipt Date: 20070629
  Transmission Date: 20080115
  Serious: Yes (Hospitalization)
  Sender: FDA-Public Use
  Company Number: FR-GILEAD-2007-0012592

PATIENT
  Sex: Male
  Weight: 53 kg

DRUGS (4)
  1. TRUVADA [Suspect]
     Indication: HIV INFECTION
     Route: 048
     Dates: start: 20070614
  2. SUSTIVA [Suspect]
     Indication: HIV INFECTION
     Route: 048
     Dates: start: 20070614
  3. BACTRIM [Concomitant]
     Indication: PROPHYLAXIS
     Route: 048
     Dates: start: 20070501
  4. ZELITREX [Concomitant]
     Indication: PROPHYLAXIS
     Route: 048
     Dates: start: 20070601

REACTIONS (2)
  - DELIRIUM [None]
  - MENTAL DISORDER [None]
